FAERS Safety Report 5011772-X (Version None)
Quarter: 2006Q2

REPORT INFORMATION
  Report Type: 
  Country: None (occurrence: None)
  Receive Date: 20060524
  Receipt Date: 20060524
  Transmission Date: 20061013
  Serious: Yes (Hospitalization)
  Sender: FDA-Public Use
  Company Number: None

PATIENT
  Age: 54 Year
  Sex: Male
  Weight: 250.3856 kg

DRUGS (6)
  1. WARFARIN 5MG [Suspect]
     Indication: PULMONARY EMBOLISM
     Dosage: 5MG ONCE DAILY ORALLY
     Route: 048
     Dates: start: 20040326, end: 20060302
  2. FLUNISOLIDE [Concomitant]
  3. GLYBURIDE [Concomitant]
  4. FEXOFENADINE [Concomitant]
  5. WARFARIN SODIUM [Concomitant]
  6. METFORMIN HYDROCHLORIDE [Concomitant]

REACTIONS (3)
  - ABDOMINAL PAIN [None]
  - HAEMATOCHEZIA [None]
  - INTERNATIONAL NORMALISED RATIO DECREASED [None]
